FAERS Safety Report 6634536-X (Version None)
Quarter: 2010Q1

REPORT INFORMATION
  Report Type: 
  Country: None (occurrence: None)
  Receive Date: 20100312
  Receipt Date: 20100312
  Transmission Date: 20100710
  Serious: Yes (Hospitalization, Disabling)
  Sender: FDA-Public Use
  Company Number: None

PATIENT
  Sex: Female
  Weight: 72.5755 kg

DRUGS (3)
  1. CRESTOR [Suspect]
     Indication: BLOOD CHOLESTEROL INCREASED
     Dosage: 1 DAILY
     Dates: start: 20081201, end: 20090301
  2. CRESTOR [Suspect]
     Indication: VASCULAR STENT INSERTION
     Dosage: 1 DAILY
     Dates: start: 20081201, end: 20090301
  3. PLAVIX [Suspect]
     Indication: ARTERIAL STENT INSERTION
     Dosage: 75 1 DAILY
     Dates: start: 20060101

REACTIONS (7)
  - ASTHENIA [None]
  - DIZZINESS [None]
  - KIDNEY INFECTION [None]
  - MALAISE [None]
  - MYALGIA [None]
  - PAIN [None]
  - PRESYNCOPE [None]
